FAERS Safety Report 6579982-8 (Version None)
Quarter: 2010Q1

REPORT INFORMATION
  Report Type: 
  Country: None (occurrence: None)
  Receive Date: 20100212
  Receipt Date: 20100202
  Transmission Date: 20100710
  Serious: Yes (Hospitalization)
  Sender: FDA-Public Use
  Company Number: GB-PFIZER INC-2010010693

PATIENT
  Age: 10 Year
  Sex: Female

DRUGS (13)
  1. IRINOTECAN HCL [Suspect]
     Indication: MEDULLOBLASTOMA RECURRENT
     Dosage: 6 MG, CYCLIC
  2. TEMOZOLOMIDE [Suspect]
     Indication: MEDULLOBLASTOMA RECURRENT
     Dosage: 75 MG, CYCLIC
  3. POTASSIUM CHLORIDE [Concomitant]
     Indication: BLOOD POTASSIUM DECREASED
     Dosage: 30 MMOL, 1X/DAY
     Route: 048
     Dates: start: 20091123
  4. HYDROCORTISONE [Concomitant]
     Dosage: UNK
     Route: 048
  5. SEPTRIN [Concomitant]
     Dosage: UNK
     Route: 048
  6. VALACICLOVIR [Concomitant]
     Dosage: UNK
     Route: 048
     Dates: start: 20091214
  7. LEVOTHYROXINE SODIUM [Concomitant]
     Dosage: UNK
  8. AMILORIDE [Concomitant]
     Dosage: UNK
     Route: 048
     Dates: start: 20091123
  9. AUGMENTIN [Concomitant]
     Indication: URINARY TRACT INFECTION
     Dosage: UNK
     Dates: start: 20100120, end: 20100126
  10. BUSCOPAN [Concomitant]
     Indication: ABDOMINAL PAIN UPPER
     Dosage: UNK
     Route: 048
     Dates: start: 20100121, end: 20100122
  11. LOPERAMIDE [Concomitant]
     Indication: DIARRHOEA
     Dosage: UNK
     Route: 048
     Dates: start: 20100119, end: 20100119
  12. MOVICOL [Concomitant]
     Indication: CONSTIPATION
     Dosage: UNK
     Route: 048
     Dates: start: 20100118, end: 20100118
  13. ONDANSETRON [Concomitant]
     Indication: NAUSEA
     Dosage: UNK
     Route: 042
     Dates: start: 20100122, end: 20100122

REACTIONS (1)
  - CONVULSION [None]
